FAERS Safety Report 14583294 (Version 1)
Quarter: 2018Q1

REPORT INFORMATION
  Report Type: Spontaneous
  Country: US (occurrence: US)
  Receive Date: 20180228
  Receipt Date: 20180228
  Transmission Date: 20180509
  Serious: No
  Sender: FDA-Public Use
  Company Number: None

PATIENT

DRUGS (15)
  1. GABAPENTIN. [Concomitant]
     Active Substance: GABAPENTIN
  2. SIMVISTATIN [Concomitant]
     Active Substance: SIMVASTATIN
  3. AMITRIPLALIN [Concomitant]
  4. OMEPRAZOL [Concomitant]
     Active Substance: OMEPRAZOLE
  5. VITAMIN D3 [Concomitant]
     Active Substance: CHOLECALCIFEROL
  6. HYDROCODONE BITARTRATE AND ACETAMINOPHEN [Suspect]
     Active Substance: ACETAMINOPHEN\HYDROCODONE BITARTRATE
     Indication: MEDICAL DEVICE IMPLANTATION
     Route: 048
     Dates: start: 19670404
  7. D-3 WITH CALCIUM [Concomitant]
  8. GLUCOSAMINE W/CHONDROITIN [Concomitant]
     Active Substance: CHONDROITIN SULFATE A\GLUCOSAMINE
  9. ESTRADIOL. [Concomitant]
     Active Substance: ESTRADIOL
  10. SERTRALINE [Concomitant]
     Active Substance: SERTRALINE HYDROCHLORIDE
  11. COQ10 [Concomitant]
     Active Substance: UBIDECARENONE
  12. BIOTIN [Concomitant]
     Active Substance: BIOTIN
  13. HYDROCODONE BITARTRATE AND ACETAMINOPHEN [Suspect]
     Active Substance: ACETAMINOPHEN\HYDROCODONE BITARTRATE
     Indication: BACK PAIN
     Route: 048
     Dates: start: 19670404
  14. BACLOFEN. [Concomitant]
     Active Substance: BACLOFEN
  15. SEROQUIL XR [Concomitant]

REACTIONS (3)
  - Inadequate analgesia [None]
  - Road traffic accident [None]
  - Osteoarthritis [None]

NARRATIVE: CASE EVENT DATE: 19970402
